FAERS Safety Report 4799962-2 (Version None)
Quarter: 2005Q4

REPORT INFORMATION
  Report Type: 
  Country: None (occurrence: None)
  Receive Date: 20051013
  Receipt Date: 20051006
  Transmission Date: 20060501
  Serious: Yes (Death, Hospitalization)
  Sender: FDA-Public Use
  Company Number: 200513421GDS

PATIENT
  Age: 35 Year
  Sex: Male

DRUGS (6)
  1. CIPROFLOXACIN HYDROCHLORIDE [Suspect]
     Indication: URINARY TRACT INFECTION
     Dosage: 1000 MG, TOTAL DAILY, ORAL
     Route: 048
     Dates: start: 20050707, end: 20050717
  2. AUGMENTIN '125' [Suspect]
     Indication: RESPIRATORY DISORDER
     Dosage: 3000 MG, TOTAL DAILY, INTRAVENOUS
     Route: 042
     Dates: start: 20050702, end: 20050708
  3. SERTRALINE HYDROCHLORIDE [Suspect]
     Indication: MENTAL RETARDATION SEVERITY UNSPECIFIED
     Dosage: 50 MG, TOTAL DAILY, ORAL
     Route: 048
     Dates: end: 20050101
  4. SINOGAN (LEVOMEPROMAZINE) [Suspect]
     Indication: MENTAL RETARDATION SEVERITY UNSPECIFIED
     Dosage: 50 MG, TOTAL DAILY, ORAL
     Route: 048
     Dates: end: 20050101
  5. CLONAZEPAM [Suspect]
     Indication: MENTAL RETARDATION SEVERITY UNSPECIFIED
     Dosage: 2 MG, TOTAL DAILY, ORAL
     Route: 048
     Dates: end: 20050101
  6. RISPERDAL [Suspect]
     Indication: MENTAL RETARDATION SEVERITY UNSPECIFIED
     Dosage: 3 MG, TOTAL DAILY, ORAL
     Route: 048
     Dates: end: 20050101

REACTIONS (2)
  - AGRANULOCYTOSIS [None]
  - PNEUMONIA ASPIRATION [None]
